FAERS Safety Report 8029493-8 (Version None)
Quarter: 2012Q1

REPORT INFORMATION
  Report Type: 
  Country: None (occurrence: None)
  Receive Date: 20120109
  Receipt Date: 20111229
  Transmission Date: 20120608
  Serious: Yes (Hospitalization)
  Sender: FDA-Public Use
  Company Number: US-BIOGENIDEC-2008BI021811

PATIENT
  Age: 67 Year
  Sex: Female

DRUGS (7)
  1. TYSABRI [Suspect]
     Indication: MULTIPLE SCLEROSIS
     Route: 042
     Dates: start: 20080605, end: 20100208
  2. NEXIUM [Concomitant]
     Indication: HIATUS HERNIA
     Route: 048
     Dates: start: 19920101
  3. FLONASE [Concomitant]
     Indication: RHINITIS ALLERGIC
     Route: 055
     Dates: start: 19940101
  4. WELLBUTRIN [Concomitant]
     Indication: DEPRESSION
     Route: 048
     Dates: start: 20080101
  5. PROZAC [Concomitant]
     Indication: DEPRESSION
     Route: 048
     Dates: start: 19900101
  6. MUCINEX [Concomitant]
     Indication: RHINITIS ALLERGIC
     Route: 048
     Dates: start: 20080605
  7. BACLOFEN [Concomitant]
     Indication: MUSCLE SPASMS
     Route: 048
     Dates: start: 19920101

REACTIONS (4)
  - NORMAL PRESSURE HYDROCEPHALUS [None]
  - VENTRICULAR TACHYCARDIA [None]
  - CONVULSION [None]
  - SUBDURAL HAEMATOMA [None]
